FAERS Safety Report 4673288-X (Version None)
Quarter: 2005Q2

REPORT INFORMATION
  Report Type: 
  Country: None (occurrence: None)
  Receive Date: 20050524
  Receipt Date: 20050524
  Transmission Date: 20051028
  Serious: Yes (Hospitalization)
  Sender: FDA-Public Use
  Company Number: None

PATIENT
  Age: 74 Year
  Sex: Male
  Weight: 59.5 kg

DRUGS (14)
  1. ASPIRIN [Suspect]
     Indication: CEREBROVASCULAR ACCIDENT PROPHYLAXIS
     Dosage: 81MG EC TAB - ONE DAILY
     Dates: start: 19960701
  2. CLOPIDOGREL BISULFATE [Suspect]
     Indication: CEREBROVASCULAR ACCIDENT PROPHYLAXIS
     Dosage: 75MG TAB
     Dates: start: 19990101
  3. CLOPIDOGREL BISULFATE [Suspect]
     Indication: MYOCARDIAL INFARCTION
     Dosage: 75MG TAB
     Dates: start: 19990101
  4. CLOPIDOGREL BISULFATE [Suspect]
     Indication: PROPHYLAXIS
     Dosage: 75MG TAB
     Dates: start: 19990101
  5. SPIRONOLACTONE [Concomitant]
  6. FUROSEMIDE [Concomitant]
  7. METOLAZONE [Concomitant]
  8. RANITIDINE [Concomitant]
  9. LISINOPRIL [Concomitant]
  10. FINASTERIDE [Concomitant]
  11. DOCUSATE [Concomitant]
  12. ALBUTEROL [Concomitant]
  13. ACETAMINOPHEN [Concomitant]
  14. GLYBURIDE [Concomitant]

REACTIONS (2)
  - HAEMATOCHEZIA [None]
  - RECTAL HAEMORRHAGE [None]
